FAERS Safety Report 17183586 (Version 1)
Quarter: 2019Q4

REPORT INFORMATION
  Report Type: Spontaneous
  Country: JP (occurrence: JP)
  Receive Date: 20191220
  Receipt Date: 20191220
  Transmission Date: 20200122
  Serious: Yes (Death, Other)
  Sender: FDA-Public Use
  Company Number: JP-GLAXOSMITHKLINE-JP2019230821

PATIENT
  Age: 59 Year
  Sex: Female

DRUGS (1)
  1. VOLTAREN TAPE [Suspect]
     Active Substance: DICLOFENAC SODIUM
     Indication: MUSCLE STRAIN
     Dosage: 30 MG,UNKNOWN
     Route: 061
     Dates: start: 20190924

REACTIONS (7)
  - Chest discomfort [Fatal]
  - Myocardial infarction [Fatal]
  - Throat tightness [Fatal]
  - Abdominal discomfort [Fatal]
  - Pallor [Fatal]
  - Paraesthesia oral [Fatal]
  - Blood creatine phosphokinase increased [Fatal]

NARRATIVE: CASE EVENT DATE: 20191001
